FAERS Safety Report 25301727 (Version 1)
Quarter: 2025Q2

REPORT INFORMATION
  Report Type: Spontaneous
  Country: US (occurrence: US)
  Receive Date: 20250512
  Receipt Date: 20250512
  Transmission Date: 20250717
  Serious: No
  Sender: UCB
  Company Number: US-UCBSA-2024055117

PATIENT
  Sex: Female
  Weight: 104.31 kg

DRUGS (1)
  1. CIMZIA [Suspect]
     Active Substance: CERTOLIZUMAB PEGOL
     Indication: Psoriatic arthropathy
     Dosage: 400 MILLIGRAM, EV 4 WEEKS
     Route: 058
     Dates: start: 202301

REACTIONS (3)
  - Abdominal discomfort [Unknown]
  - Product use issue [Unknown]
  - Illness [Unknown]

NARRATIVE: CASE EVENT DATE: 20240101
